FAERS Safety Report 8067065-X (Version None)
Quarter: 2012Q1

REPORT INFORMATION
  Report Type: 
  Country: None (occurrence: None)
  Receive Date: 20120124
  Receipt Date: 20120120
  Transmission Date: 20120608
  Serious: Yes (Death)
  Sender: FDA-Public Use
  Company Number: US-ACTELION-A-NJ2012-59930

PATIENT

DRUGS (3)
  1. COUMADIN [Concomitant]
  2. VENTAVIS [Suspect]
     Indication: PULMONARY ARTERIAL HYPERTENSION
     Dosage: UNK
     Route: 055
     Dates: start: 20111222, end: 20120111
  3. CALCIUM CHANNEL BLOCKERS [Concomitant]

REACTIONS (3)
  - COR PULMONALE [None]
  - CARDIAC FAILURE [None]
  - VENTRICULAR FIBRILLATION [None]
